FAERS Safety Report 16167864 (Version 1)
Quarter: 2019Q2

REPORT INFORMATION
  Report Type: Report from Study
  Country: None (occurrence: US)
  Receive Date: 20190408
  Receipt Date: 20190408
  Transmission Date: 20190711
  Serious: Yes (Hospitalization)
  Sender: FDA-Public Use
  Company Number: US-ABBVIE-19K-163-2636640-00

PATIENT
  Age: 43 Year
  Sex: Female

DRUGS (2)
  1. HUMIRA [Suspect]
     Active Substance: ADALIMUMAB
     Indication: RHEUMATOID ARTHRITIS
     Route: 058
     Dates: start: 20190120
  2. ORENCIA [Suspect]
     Active Substance: ABATACEPT
     Indication: PRODUCT USED FOR UNKNOWN INDICATION
     Route: 065

REACTIONS (15)
  - Migraine [Unknown]
  - Weight increased [Unknown]
  - Fatigue [Not Recovered/Not Resolved]
  - Sjogren^s syndrome [Unknown]
  - Weight bearing difficulty [Unknown]
  - Swelling [Unknown]
  - Joint stiffness [Unknown]
  - Injection site pain [Unknown]
  - Dysstasia [Unknown]
  - Joint swelling [Unknown]
  - Musculoskeletal stiffness [Unknown]
  - Peripheral swelling [Unknown]
  - Hepatic enzyme increased [Unknown]
  - Pain [Unknown]
  - Injection site bruising [Unknown]

NARRATIVE: CASE EVENT DATE: 201901
